FAERS Safety Report 4792865-9 (Version None)
Quarter: 2005Q4

REPORT INFORMATION
  Report Type: 
  Country: None (occurrence: None)
  Receive Date: 20051010
  Receipt Date: 20050930
  Transmission Date: 20060501
  Serious: Yes (Hospitalization)
  Sender: FDA-Public Use
  Company Number: CA-ABBOTT-05P-028-0312682-00

PATIENT
  Age: 56 Year
  Sex: Female

DRUGS (4)
  1. EPIVAL TABLETS [Suspect]
     Indication: BIPOLAR DISORDER
     Route: 048
     Dates: start: 19990101
  2. EPIVAL TABLETS [Suspect]
     Route: 048
     Dates: start: 19990101
  3. OLANZAPINE [Concomitant]
     Indication: DRUG USE FOR UNKNOWN INDICATION
     Route: 048
  4. RISPERIDONE [Concomitant]
     Indication: DRUG USE FOR UNKNOWN INDICATION
     Route: 048

REACTIONS (2)
  - ARTHRITIS BACTERIAL [None]
  - INAPPROPRIATE ANTIDIURETIC HORMONE SECRETION [None]
